FAERS Safety Report 7903299-X (Version None)
Quarter: 2011Q4

REPORT INFORMATION
  Report Type: 
  Country: None (occurrence: None)
  Receive Date: 20111109
  Receipt Date: 20111031
  Transmission Date: 20120403
  Serious: Yes (Death, Hospitalization)
  Sender: FDA-Public Use
  Company Number: US-JNJFOC-20101205041

PATIENT
  Sex: Male
  Weight: 13.2 kg

DRUGS (13)
  1. ALBUTEROL [Concomitant]
  2. QVAR 40 [Concomitant]
  3. PERIACTIN [Concomitant]
  4. PANCREATIC ENZYMES [Concomitant]
  5. VITAMAX [Concomitant]
  6. SINGULAIR [Concomitant]
  7. PULMOZYME [Concomitant]
  8. ALBUTEROL [Concomitant]
  9. PREVACID [Concomitant]
  10. ELECTROLYTE SOLUTION [Concomitant]
  11. CONCENTRATED TYLENOL INFANT DROPS [Suspect]
     Indication: PAIN
     Route: 048
     Dates: start: 20081217
  12. CONCENTRATED TYLENOL INFANT DROPS [Suspect]
     Indication: MALAISE
     Route: 048
     Dates: start: 20081217
  13. FLUTICASONE PROPIONATE [Concomitant]

REACTIONS (4)
  - VOMITING [None]
  - DIARRHOEA [None]
  - TRANSMISSION OF AN INFECTIOUS AGENT VIA A MEDICINAL PRODUCT [None]
  - SEPTIC SHOCK [None]
